FAERS Safety Report 6325341-2 (Version None)
Quarter: 2009Q3

REPORT INFORMATION
  Report Type: 
  Country: None (occurrence: None)
  Receive Date: 20090824
  Receipt Date: 20090718
  Transmission Date: 20100115
  Serious: No
  Sender: FDA-Public Use
  Company Number: US-ABBOTT-09P-163-0586773-00

PATIENT
  Sex: Female
  Weight: 76.272 kg

DRUGS (12)
  1. NIASPAN [Suspect]
     Indication: BLOOD CHOLESTEROL INCREASED
     Dates: start: 20090701
  2. ATENOLOL [Concomitant]
     Indication: DRUG USE FOR UNKNOWN INDICATION
  3. LISINOPRIL [Concomitant]
     Indication: DRUG USE FOR UNKNOWN INDICATION
  4. LOVAZA [Concomitant]
     Indication: DRUG USE FOR UNKNOWN INDICATION
  5. XANAX [Concomitant]
     Indication: DRUG USE FOR UNKNOWN INDICATION
  6. ANTIDEPRESSANTS [Concomitant]
     Indication: DRUG USE FOR UNKNOWN INDICATION
  7. SYNTHROID [Concomitant]
     Indication: DRUG USE FOR UNKNOWN INDICATION
  8. MVT [Concomitant]
     Indication: DRUG USE FOR UNKNOWN INDICATION
  9. VIT E [Concomitant]
     Indication: DRUG USE FOR UNKNOWN INDICATION
  10. FLAX SEED [Concomitant]
     Indication: DRUG USE FOR UNKNOWN INDICATION
  11. PROBIOTIC [Concomitant]
     Indication: DRUG USE FOR UNKNOWN INDICATION
  12. TUMERIC [Concomitant]
     Indication: DRUG USE FOR UNKNOWN INDICATION

REACTIONS (2)
  - FLUSHING [None]
  - RESTLESS LEGS SYNDROME [None]
